FAERS Safety Report 15285811 (Version 1)
Quarter: 2018Q3

REPORT INFORMATION
  Report Type: Spontaneous
  Country: US (occurrence: US)
  Receive Date: 20180802
  Receipt Date: 20180802
  Transmission Date: 20181010
  Serious: No
  Sender: FDA-Public Use
  Company Number: None

PATIENT
  Age: 15 Year
  Sex: Male
  Weight: 71.21 kg

DRUGS (2)
  1. GUANFACINE 1MG [Suspect]
     Active Substance: GUANFACINE
     Route: 048
     Dates: start: 201709
  2. GUANFACINE ER 3MG [Suspect]
     Active Substance: GUANFACINE
     Indication: ATTENTION DEFICIT/HYPERACTIVITY DISORDER
     Route: 048
     Dates: start: 201412, end: 201501

REACTIONS (2)
  - Product substitution issue [None]
  - Drug ineffective [None]
